FAERS Safety Report 5916272-8 (Version None)
Quarter: 2008Q4

REPORT INFORMATION
  Report Type: 
  Country: None (occurrence: None)
  Receive Date: 20081013
  Receipt Date: 20081003
  Transmission Date: 20090506
  Serious: Yes (Other)
  Sender: FDA-Public Use
  Company Number: PHHY2008BR23615

PATIENT
  Sex: Male

DRUGS (3)
  1. TEGRETOL [Suspect]
     Indication: EPILEPSY
     Dosage: 400 MG, QHS
     Route: 048
  2. TEGRETOL [Suspect]
     Indication: CONVULSION
  3. CARBAMAZEPINE [Suspect]
     Dosage: 400MG, UNK

REACTIONS (6)
  - AGITATION [None]
  - DRUG ADMINISTRATION ERROR [None]
  - HEAD DISCOMFORT [None]
  - LABYRINTHITIS [None]
  - MEMORY IMPAIRMENT [None]
  - SOMNOLENCE [None]
